FAERS Safety Report 6831319-2 (Version None)
Quarter: 2010Q3

REPORT INFORMATION
  Report Type: 
  Country: None (occurrence: None)
  Receive Date: 20100712
  Receipt Date: 20100701
  Transmission Date: 20110219
  Serious: Yes (Other)
  Sender: FDA-Public Use
  Company Number: GB-PFIZER INC-2010052662

PATIENT
  Age: 38 Year
  Sex: Female

DRUGS (1)
  1. CHAMPIX [Suspect]
     Indication: SMOKING CESSATION THERAPY
     Dosage: UNK
     Dates: start: 20100319, end: 20100529

REACTIONS (5)
  - ABDOMINAL DISTENSION [None]
  - DEPRESSED MOOD [None]
  - HORMONE LEVEL ABNORMAL [None]
  - MENSTRUATION IRREGULAR [None]
  - WEIGHT INCREASED [None]
